FAERS Safety Report 7416336-6 (Version None)
Quarter: 2011Q2

REPORT INFORMATION
  Report Type: 
  Country: None (occurrence: None)
  Receive Date: 20110414
  Receipt Date: 20110331
  Transmission Date: 20111010
  Serious: No
  Sender: FDA-Public Use
  Company Number: US-B.I. PHARMACEUTICALS,INC./RIDGEFIELD-2011-BP-02228BP

PATIENT
  Sex: Male

DRUGS (15)
  1. GEMFIBROZIL [Concomitant]
     Indication: DIABETES MELLITUS
     Dosage: 1200 MG
     Route: 048
  2. DIGOXIN [Concomitant]
     Indication: ATRIAL FIBRILLATION
     Dosage: 0.25 MG
     Route: 048
  3. GLUCOTROL [Concomitant]
     Indication: DIABETES MELLITUS
     Dosage: 10 MG
     Route: 048
  4. VENLAFAXINE HCL [Concomitant]
     Indication: ANXIETY
     Dosage: 300 MG
     Route: 048
  5. LORAZEPAM [Concomitant]
     Dosage: 0.5 MG
  6. SPIRIVA [Suspect]
     Dosage: 18 MCG
     Route: 055
     Dates: start: 20100901, end: 20110101
  7. COUMADIN [Concomitant]
     Indication: PROPHYLAXIS
     Route: 048
  8. O2 [Concomitant]
     Indication: CHRONIC OBSTRUCTIVE PULMONARY DISEASE
     Route: 045
  9. CELEBREX [Concomitant]
  10. SPIRIVA [Suspect]
     Indication: CHRONIC OBSTRUCTIVE PULMONARY DISEASE
     Dosage: 18 MCG
     Route: 055
     Dates: end: 20090101
  11. ENALAPRIL MALEATE [Concomitant]
     Indication: HYPERTENSION
     Dosage: 10 MG
     Route: 048
  12. ACTOS [Concomitant]
     Indication: DIABETES MELLITUS
     Dosage: 30 MG
     Route: 048
  13. SIMVASTATIN [Concomitant]
     Indication: BLOOD CHOLESTEROL INCREASED
     Dosage: 80 MG
     Route: 048
  14. CENTRUM SILVER [Concomitant]
  15. TYLENOL EX STRENGTH [Concomitant]

REACTIONS (5)
  - DRY MOUTH [None]
  - DYSURIA [None]
  - FAECES HARD [None]
  - HEADACHE [None]
  - DRUG INEFFECTIVE [None]
